FAERS Safety Report 14258412 (Version 1)
Quarter: 2017Q4

REPORT INFORMATION
  Report Type: Spontaneous
  Country: US (occurrence: US)
  Receive Date: 20171206
  Receipt Date: 20171206
  Transmission Date: 20180321
  Serious: Yes (Other)
  Sender: FDA-Public Use
  Company Number: None

PATIENT
  Age: 84 Year
  Sex: Male
  Weight: 67.5 kg

DRUGS (3)
  1. SAW PALMETTO [Concomitant]
     Active Substance: HERBALS\SAW PALMETTO
  2. METROPOLOL [Concomitant]
     Active Substance: METOPROLOL
  3. ATORVASTATIN CALCIUM. [Suspect]
     Active Substance: ATORVASTATIN CALCIUM
     Indication: BLOOD CHOLESTEROL ABNORMAL
     Dosage: ?          QUANTITY:1 TABLET(S);?
     Route: 048
     Dates: start: 20160607, end: 20171101

REACTIONS (4)
  - Mood swings [None]
  - Therapy cessation [None]
  - Depression [None]
  - Anger [None]

NARRATIVE: CASE EVENT DATE: 20161101
